FAERS Safety Report 4468258-0 (Version None)
Quarter: 2004Q4

REPORT INFORMATION
  Report Type: 
  Country: None (occurrence: None)
  Receive Date: 20041004
  Receipt Date: 20040922
  Transmission Date: 20050328
  Serious: Yes (Hospitalization)
  Sender: FDA-Public Use
  Company Number: 2004235233FI

PATIENT
  Age: 37 Year
  Sex: Female

DRUGS (3)
  1. BEXTRA [Suspect]
     Indication: BACK PAIN
     Dosage: 40 MG, QD, ORAL; 20 MG, QD, ORAL; 40 MG, QD, ORAL
     Route: 048
     Dates: start: 20040906, end: 20040910
  2. BEXTRA [Suspect]
     Indication: BACK PAIN
     Dosage: 40 MG, QD, ORAL; 20 MG, QD, ORAL; 40 MG, QD, ORAL
     Route: 048
     Dates: start: 20040911, end: 20040916
  3. BEXTRA [Suspect]
     Indication: BACK PAIN
     Dosage: 40 MG, QD, ORAL; 20 MG, QD, ORAL; 40 MG, QD, ORAL
     Route: 048
     Dates: start: 20040917, end: 20040919

REACTIONS (7)
  - BACK PAIN [None]
  - EAR PAIN [None]
  - HAEMATURIA [None]
  - NECK PAIN [None]
  - PAIN IN EXTREMITY [None]
  - STEVENS-JOHNSON SYNDROME [None]
  - TENDERNESS [None]
